FAERS Safety Report 4450307-7 (Version None)
Quarter: 2004Q3

REPORT INFORMATION
  Report Type: 
  Country: None (occurrence: None)
  Receive Date: 20040914
  Receipt Date: 20040830
  Transmission Date: 20050211
  Serious: No
  Sender: FDA-Public Use
  Company Number: 04P-062-0271896-00

PATIENT
  Age: 53 Year
  Sex: Male

DRUGS (11)
  1. VALPROATE SODIUM [Suspect]
     Indication: CONVULSION
     Dosage: 500 MG, 2 IN 1 D, PER ORAL
     Route: 048
     Dates: start: 20040601
  2. SERTRALINE HYDROCHLORIDE [Suspect]
     Indication: DEPRESSED MOOD
     Dosage: 100 MG, 2 IN 1 D, PER ORAL
     Route: 048
     Dates: start: 20040515
  3. SERTRALINE HYDROCHLORIDE [Suspect]
     Indication: MENTAL DISORDER DUE TO A GENERAL MEDICAL CONDITION
     Dosage: 100 MG, 2 IN 1 D, PER ORAL
     Route: 048
     Dates: start: 20040515
  4. ACETYLSALICYLIC ACID [Concomitant]
  5. LOSARTAN POTASSIUM [Concomitant]
  6. ATORVASTATIN CALCIUM [Concomitant]
  7. METFORMIN HCL [Concomitant]
  8. ALT-INSULIN [Concomitant]
  9. PENTOXIFYLLINE [Concomitant]
  10. HEPARIN [Concomitant]
  11. CEFUROXIM (CEFUROXIME) [Concomitant]

REACTIONS (3)
  - CONVULSION [None]
  - HEPATOCELLULAR DAMAGE [None]
  - LIPASE INCREASED [None]
